FAERS Safety Report 6003806-0 (Version None)
Quarter: 2008Q4

REPORT INFORMATION
  Report Type: 
  Country: None (occurrence: None)
  Receive Date: 20081216
  Receipt Date: 20081209
  Transmission Date: 20090506
  Serious: Yes (Hospitalization)
  Sender: FDA-Public Use
  Company Number: US-AVENTIS-200821532GDDC

PATIENT
  Age: 77 Year
  Sex: Male
  Weight: 88.9 kg

DRUGS (17)
  1. TAXOTERE [Suspect]
     Route: 042
     Dates: start: 20080929, end: 20081110
  2. CODE UNBROKEN [Suspect]
     Route: 048
     Dates: start: 20080928
  3. PREDNISONE TAB [Suspect]
     Route: 048
     Dates: start: 20080929
  4. NORVASC [Concomitant]
     Dates: start: 20081110
  5. FLONASE [Concomitant]
     Dates: start: 20081110
  6. MULTIVITAMIN [Concomitant]
     Dates: start: 20080924
  7. ZOMETA [Concomitant]
     Dates: start: 20080924
  8. IRON [Concomitant]
     Dates: start: 20080924
  9. CALCIUM CITRATE AND VITAMIN D [Concomitant]
     Dates: start: 20080924
  10. VICODIN [Concomitant]
     Dates: start: 20080711
  11. M.V.I. [Concomitant]
     Dates: start: 20080530
  12. ASPIRIN [Concomitant]
     Dates: start: 20080530
  13. ATENOLOL [Concomitant]
     Dates: start: 20080530
  14. AMIODARONE HCL [Concomitant]
     Dates: start: 20080530
  15. PRAVACHOL [Concomitant]
     Dates: start: 20080530
  16. PRANDIN                            /01393601/ [Concomitant]
     Dates: start: 20080530
  17. LUPRON [Concomitant]
     Dates: start: 20080530

REACTIONS (2)
  - HYPONATRAEMIA [None]
  - PNEUMONITIS [None]
